FAERS Safety Report 14171610 (Version 1)
Quarter: 2017Q4

REPORT INFORMATION
  Report Type: Spontaneous
  Country: AT (occurrence: AT)
  Receive Date: 20171108
  Receipt Date: 20171108
  Transmission Date: 20180321
  Serious: Yes (Life-Threatening, Hospitalization, Other)
  Sender: FDA-Public Use
  Company Number: AT-INCYTE CORPORATION-2017IN009302

PATIENT

DRUGS (1)
  1. JAKAVI [Suspect]
     Active Substance: RUXOLITINIB
     Indication: PRIMARY MYELOFIBROSIS
     Dosage: UNK
     Route: 065
     Dates: start: 2012

REACTIONS (3)
  - Liver abscess [Unknown]
  - Pneumocystis jirovecii pneumonia [Unknown]
  - Ulcer [Unknown]
